FAERS Safety Report 7408217-9 (Version None)
Quarter: 2011Q2

REPORT INFORMATION
  Report Type: 
  Country: None (occurrence: None)
  Receive Date: 20110412
  Receipt Date: 20110103
  Transmission Date: 20111010
  Serious: No
  Sender: FDA-Public Use
  Company Number: A0899597A

PATIENT
  Age: 74 Year
  Sex: Male
  Weight: 86.4 kg

DRUGS (2)
  1. GLYBURIDE [Suspect]
     Route: 065
  2. JALYN [Suspect]
     Dosage: 1CAP PER DAY
     Route: 065
     Dates: start: 20101123, end: 20101207

REACTIONS (2)
  - BLOOD GLUCOSE INCREASED [None]
  - DRUG INTERACTION [None]
